FAERS Safety Report 6467455-2 (Version None)
Quarter: 2009Q4

REPORT INFORMATION
  Report Type: 
  Country: None (occurrence: None)
  Receive Date: 20091202
  Receipt Date: 20091123
  Transmission Date: 20100525
  Serious: Yes (Other)
  Sender: FDA-Public Use
  Company Number: GXKR2009TH12747

PATIENT
  Age: 46 Year
  Sex: Male

DRUGS (1)
  1. PREDNISOLONE [Suspect]
     Indication: VOGT-KOYANAGI-HARADA SYNDROME
     Dosage: 30 MG, UNK
     Route: 048

REACTIONS (5)
  - CHORIORETINOPATHY [None]
  - RETINAL DETACHMENT [None]
  - RETINAL OEDEMA [None]
  - SUBRETINAL FIBROSIS [None]
  - VISUAL ACUITY REDUCED [None]
